FAERS Safety Report 8261548-5 (Version None)
Quarter: 2012Q2

REPORT INFORMATION
  Report Type: 
  Country: None (occurrence: None)
  Receive Date: 20120405
  Receipt Date: 20120327
  Transmission Date: 20120825
  Serious: Yes (Hospitalization)
  Sender: FDA-Public Use
  Company Number: US-ELI_LILLY_AND_COMPANY-US201103008418

PATIENT
  Sex: Female

DRUGS (10)
  1. FORTEO [Suspect]
     Dosage: 20 UG, QD
  2. AMLODIPINE [Concomitant]
  3. HYDROCHLOROTHIAZIDE [Concomitant]
  4. CALCIUM CARBONATE [Concomitant]
  5. FORTEO [Suspect]
     Dosage: 20 UG, QD
     Route: 065
  6. FORTEO [Suspect]
     Indication: OSTEOPOROSIS
     Dosage: 20 UG, QD
     Dates: start: 20110321
  7. ASPIRIN [Concomitant]
  8. FORTEO [Suspect]
     Dosage: 20 UG, QD
  9. SIMVASTATIN [Concomitant]
  10. FORTEO [Suspect]
     Dosage: 20 UG, QD

REACTIONS (12)
  - HYPOTENSION [None]
  - BLOOD PRESSURE INCREASED [None]
  - INJECTION SITE HAEMATOMA [None]
  - CONSTIPATION [None]
  - HEADACHE [None]
  - PNEUMONIA [None]
  - SOMNOLENCE [None]
  - HYPOAESTHESIA [None]
  - DYSPHONIA [None]
  - BLOOD PRESSURE DECREASED [None]
  - HYPOACUSIS [None]
  - ANAEMIA [None]
